FAERS Safety Report 9379411 (Version 3)
Quarter: 2014Q4

REPORT INFORMATION
  Report Type: Report from Study
  Country: CA (occurrence: CA)
  Receive Date: 20130702
  Receipt Date: 20141006
  Transmission Date: 20150529
  Serious: Yes (Hospitalization, Other)
  Sender: FDA-Public Use
  Company Number: CA-UCBSA-090569

PATIENT
  Age: 64 Year
  Sex: Male
  Weight: 117.5 kg

DRUGS (12)
  1. METHOTREXATE [Concomitant]
     Active Substance: METHOTREXATE
     Route: 048
     Dates: start: 20130220, end: 20130227
  2. FOLIC ACID. [Concomitant]
     Active Substance: FOLIC ACID
     Indication: PROPHYLAXIS
     Route: 048
     Dates: start: 20130123, end: 20130612
  3. EFFEXOR [Concomitant]
     Active Substance: VENLAFAXINE HYDROCHLORIDE
     Indication: DEPRESSION
     Dosage: 300 MG, ONCE DAILY (QD)
     Route: 048
     Dates: start: 2004
  4. VITAMIN B12 [Concomitant]
     Active Substance: CYANOCOBALAMIN
     Indication: ANAEMIA
     Dosage: 1200 MG, ONCE DAILY (QD)
     Route: 048
     Dates: start: 201211
  5. METHOTREXATE [Concomitant]
     Active Substance: METHOTREXATE
     Indication: RHEUMATOID ARTHRITIS
     Route: 048
     Dates: start: 20130123, end: 20130130
  6. METHOTREXATE [Concomitant]
     Active Substance: METHOTREXATE
     Route: 048
     Dates: start: 20130206, end: 20130213
  7. AERIUS [Concomitant]
     Active Substance: DESLORATADINE
     Indication: EYE SWELLING
     Dosage: 1 TAB
     Route: 048
     Dates: start: 20130223, end: 20130223
  8. DEPO-MEDROL [Concomitant]
     Active Substance: METHYLPREDNISOLONE ACETATE
     Indication: SYNOVITIS
     Dosage: ONCE
     Dates: start: 20130416, end: 20130416
  9. CERTOLIZUMAB PEGOL RA [Suspect]
     Active Substance: CERTOLIZUMAB PEGOL
     Route: 058
     Dates: start: 20130305, end: 20130626
  10. METHOTREXATE [Concomitant]
     Active Substance: METHOTREXATE
     Route: 048
     Dates: start: 20130306, end: 20130611
  11. ADVIL [Concomitant]
     Active Substance: IBUPROFEN
     Indication: ARTHRALGIA
     Dosage: 200-400 MG
     Route: 048
     Dates: start: 201212, end: 20130305
  12. CERTOLIZUMAB PEGOL RA [Suspect]
     Active Substance: CERTOLIZUMAB PEGOL
     Indication: RHEUMATOID ARTHRITIS
     Route: 058
     Dates: start: 20130122, end: 20130219

REACTIONS (1)
  - Interstitial lung disease [Recovered/Resolved]

NARRATIVE: CASE EVENT DATE: 20130625
